FAERS Safety Report 9101191 (Version 2)
Quarter: 2013Q2

REPORT INFORMATION
  Report Type: Spontaneous
  Country: FR (occurrence: FR)
  Receive Date: 20130217
  Receipt Date: 20130524
  Transmission Date: 20140414
  Serious: Yes (Hospitalization)
  Sender: FDA-Public Use
  Company Number: FR-BRISTOL-MYERS SQUIBB COMPANY-17362252

PATIENT
  Age: 47 Year
  Sex: Male

DRUGS (13)
  1. SKENAN LP CAPS 30 MG [Suspect]
     Route: 048
     Dates: end: 20130114
  2. ACTISKENAN CAPS 5 MG [Suspect]
     Route: 048
     Dates: start: 20130110, end: 20130114
  3. ETOPOSIDE [Suspect]
     Route: 042
     Dates: start: 20130114
  4. CARBOPLATIN [Suspect]
     Route: 042
     Dates: start: 20130114
  5. TERCIAN [Suspect]
     Dosage: 1DF =70 DROPS IN THE MORNING, 50 AT MIDDAY, AND 50 IN THE EVENING, I.E. 170 DROPS PER DAY
     Dates: start: 20130112
  6. HALDOL DECANOATE [Suspect]
     Dosage: 1DF = 4VIALS/MONTH
  7. LANSOYL [Concomitant]
     Route: 048
  8. PARKINANE [Concomitant]
     Route: 048
  9. SODIUM CHLORIDE [Concomitant]
     Route: 048
  10. FORLAX [Concomitant]
     Route: 048
  11. DEPAKOTE [Concomitant]
     Route: 048
  12. DOMPERIDONE [Concomitant]
     Route: 048
  13. ESOMEPRAZOLE [Concomitant]
     Route: 048

REACTIONS (2)
  - Respiratory distress [Recovered/Resolved]
  - Respiratory acidosis [Recovered/Resolved]
